FAERS Safety Report 6181825-1 (Version None)
Quarter: 2009Q2

REPORT INFORMATION
  Report Type: 
  Country: None (occurrence: None)
  Receive Date: 20090506
  Receipt Date: 20090428
  Transmission Date: 20091009
  Serious: Yes (Hospitalization)
  Sender: FDA-Public Use
  Company Number: PHHY2009GT16221

PATIENT
  Age: 69 Year
  Sex: Female

DRUGS (2)
  1. EXFORGE [Suspect]
     Indication: HYPERTENSION
     Dosage: 5/320 MG PER DAY
     Route: 048
  2. INSULIN [Concomitant]
     Dosage: 22 U EVERY 24 HRS
     Route: 058

REACTIONS (4)
  - ARTERIOGRAM ABNORMAL [None]
  - NECROSIS [None]
  - TOE AMPUTATION [None]
  - ULCER [None]
